FAERS Safety Report 5867545-9 (Version None)
Quarter: 2008Q3

REPORT INFORMATION
  Report Type: 
  Country: None (occurrence: None)
  Receive Date: 20080902
  Receipt Date: 20080825
  Transmission Date: 20090109
  Serious: Yes (Hospitalization, Other)
  Sender: FDA-Public Use
  Company Number: US-ASTRAZENECA-2008UW16192

PATIENT
  Age: 884 Month
  Sex: Female
  Weight: 53 kg

DRUGS (2)
  1. FASLODEX [Suspect]
     Indication: BREAST CANCER
     Dosage: 250 MG DAY1, DAY 14, DAY 28 AND THEN EVERY 28 DAYS
     Route: 030
     Dates: start: 20070501
  2. ARIMIDEX [Suspect]
     Indication: BREAST CANCER
     Route: 048
     Dates: start: 20070501

REACTIONS (4)
  - DIZZINESS [None]
  - HIP FRACTURE [None]
  - SMALL INTESTINAL OBSTRUCTION [None]
  - VOLVULUS [None]
